FAERS Safety Report 16420849 (Version 1)
Quarter: 2019Q2

REPORT INFORMATION
  Report Type: Spontaneous
  Country: JP (occurrence: JP)
  Receive Date: 20190612
  Receipt Date: 20190612
  Transmission Date: 20190711
  Serious: Yes (Other)
  Sender: FDA-Public Use
  Company Number: PHJP2019JP006546

PATIENT
  Age: 40 Year
  Sex: Male

DRUGS (1)
  1. REVOLADE TAB [Suspect]
     Active Substance: ELTROMBOPAG
     Indication: IMMUNE THROMBOCYTOPENIC PURPURA
     Dosage: 12.5 MG, UNK
     Route: 048

REACTIONS (1)
  - Liver disorder [Recovered/Resolved]
